FAERS Safety Report 8630329 (Version 2)
Quarter: 2013Q3

REPORT INFORMATION
  Report Type: Spontaneous
  Country: US (occurrence: US)
  Receive Date: 20120622
  Receipt Date: 20130724
  Transmission Date: 20140515
  Serious: Yes (Hospitalization, Disabling)
  Sender: FDA-Public Use
  Company Number: US-ASTRAZENECA-2012SE34474

PATIENT
  Age: 44 Year
  Sex: Male

DRUGS (1)
  1. NEXIUM [Suspect]
     Indication: GASTROOESOPHAGEAL REFLUX DISEASE
     Dosage: TWO TIMES A DAY
     Route: 048

REACTIONS (5)
  - Limb discomfort [Unknown]
  - Hip fracture [Unknown]
  - Osteoporosis [Unknown]
  - Bone disorder [Unknown]
  - Diabetes mellitus [Unknown]
